FAERS Safety Report 24528540 (Version 1)
Quarter: 2024Q4

REPORT INFORMATION
  Report Type: Spontaneous
  Country: US (occurrence: None)
  Receive Date: 20241018
  Receipt Date: 20241018
  Transmission Date: 20250114
  Serious: No
  Sender: Public
  Company Number: None

PATIENT
  Age: 53 Year
  Sex: Male
  Weight: 88.45 kg

DRUGS (10)
  1. DORZOLAMIDE HYDROCHLORIDE AND TIMOLOL MALEATE [Suspect]
     Active Substance: DORZOLAMIDE HYDROCHLORIDE\TIMOLOL MALEATE
     Indication: Glaucoma
     Dosage: FREQUENCY : TWICE A DAY;?OTHER ROUTE : INTO THE EYE ;?
     Route: 050
     Dates: start: 201906
  2. TIMOLOL [Concomitant]
     Active Substance: TIMOLOL\TIMOLOL MALEATE
  3. BRIMONIDINE TARTRATE [Concomitant]
     Active Substance: BRIMONIDINE TARTRATE
  4. LUMIGAN [Concomitant]
     Active Substance: BIMATOPROST
  5. Betamethas Dipro [Concomitant]
  6. Ketoconaz [Concomitant]
  7. KETOCONAZOLE [Concomitant]
     Active Substance: KETOCONAZOLE
  8. DEXLANSOPRAZOLE [Concomitant]
     Active Substance: DEXLANSOPRAZOLE
  9. FAMOTIDINE [Concomitant]
     Active Substance: FAMOTIDINE
  10. METHYLPREDNISOLONE [Concomitant]
     Active Substance: METHYLPREDNISOLONE

REACTIONS (9)
  - Anosmia [None]
  - Dysgeusia [None]
  - Ageusia [None]
  - Vision blurred [None]
  - Hypoaesthesia [None]
  - Hypoaesthesia oral [None]
  - Drug ineffective [None]
  - Muscular weakness [None]
  - Fatigue [None]

NARRATIVE: CASE EVENT DATE: 20190601
